FAERS Safety Report 5679488-4 (Version None)
Quarter: 2008Q1

REPORT INFORMATION
  Report Type: 
  Country: None (occurrence: None)
  Receive Date: 20080325
  Receipt Date: 20080313
  Transmission Date: 20080703
  Serious: Yes (Death, Life-Threatening, Other)
  Sender: FDA-Public Use
  Company Number: CN-PFIZER INC-2008023289

PATIENT
  Sex: Female

DRUGS (2)
  1. SOLU-MEDROL [Suspect]
     Indication: SYSTEMIC LUPUS ERYTHEMATOSUS
     Dosage: DAILY DOSE:40MG
     Route: 030
     Dates: start: 20080217, end: 20080220
  2. AZITHROMYCIN [Concomitant]
     Dates: start: 20080201, end: 20080201

REACTIONS (4)
  - ANURIA [None]
  - DEATH [None]
  - PYREXIA [None]
  - RESPIRATORY FAILURE [None]
